FAERS Safety Report 12959091 (Version 1)
Quarter: 2016Q4

REPORT INFORMATION
  Report Type: Spontaneous
  Country: US (occurrence: US)
  Receive Date: 20161121
  Receipt Date: 20161121
  Transmission Date: 20170207
  Serious: No
  Sender: FDA-Public Use
  Company Number: US-JNJFOC-20150705645

PATIENT
  Age: 78 Year
  Sex: Female

DRUGS (6)
  1. ARNICA MONTANA. [Concomitant]
     Active Substance: ARNICA MONTANA
  2. CLARITIN [Concomitant]
     Active Substance: LORATADINE
  3. AMANTADINE [Concomitant]
     Active Substance: AMANTADINE
  4. SINEMET [Concomitant]
     Active Substance: CARBIDOPA\LEVODOPA
  5. IMODIUM [Concomitant]
     Active Substance: LOPERAMIDE HYDROCHLORIDE
  6. IMBRUVICA [Suspect]
     Active Substance: IBRUTINIB
     Indication: CHRONIC LYMPHOCYTIC LEUKAEMIA
     Route: 048
     Dates: start: 20140731

REACTIONS (7)
  - Contusion [Unknown]
  - Fatigue [Unknown]
  - Peripheral swelling [Unknown]
  - Oedema [Unknown]
  - Skin reaction [Unknown]
  - Skin haemorrhage [Unknown]
  - Dermatitis infected [Unknown]

NARRATIVE: CASE EVENT DATE: 2015
